FAERS Safety Report 15221954 (Version 5)
Quarter: 2018Q4

REPORT INFORMATION
  Report Type: Spontaneous
  Country: DE (occurrence: DE)
  Receive Date: 20180731
  Receipt Date: 20181214
  Transmission Date: 20190204
  Serious: Yes (Life-Threatening, Hospitalization, Congenital Anomaly, Other)
  Sender: FDA-Public Use
  Company Number: DE-PFIZER INC-DE-WYE-H05445408

PATIENT
  Sex: Female
  Weight: 2.85 kg

DRUGS (1)
  1. IBUPROFEN. [Suspect]
     Active Substance: IBUPROFEN
     Indication: HEADACHE
     Dosage: UNKNOWN
     Route: 064

REACTIONS (8)
  - Exposure during pregnancy [Unknown]
  - Neonatal cardiac failure [Recovered/Resolved]
  - Tricuspid valve incompetence [Recovered/Resolved]
  - Ductus arteriosus stenosis foetal [Recovered/Resolved with Sequelae]
  - Pulmonary valve incompetence [Recovered/Resolved]
  - Cardiomegaly [Not Recovered/Not Resolved]
  - Premature delivery [Unknown]
  - Right ventricular hypertrophy [Not Recovered/Not Resolved]

NARRATIVE: CASE EVENT DATE: 200209
